FAERS Safety Report 23332400 (Version 1)
Quarter: 2023Q4

REPORT INFORMATION
  Report Type: Spontaneous
  Country: CA (occurrence: CA)
  Receive Date: 20231222
  Receipt Date: 20231222
  Transmission Date: 20240110
  Serious: Yes (Hospitalization, Other)
  Sender: FDA-Public Use
  Company Number: CA-002147023-NVSC2021CA296340

PATIENT
  Age: 9 Year
  Sex: Female
  Weight: 22.7 kg

DRUGS (6)
  1. CYCLOPHOSPHAMIDE [Suspect]
     Active Substance: CYCLOPHOSPHAMIDE
     Indication: Refractory cancer
     Dosage: 250 MG/M2 (GIVEN FOR THE MAXIMUM OF 5 DAYS EVERY 21 DAYS, LAST DOSE ON 28 NOV 2021)
     Route: 042
     Dates: start: 20211124
  2. TOPOTECAN HYDROCHLORIDE [Suspect]
     Active Substance: TOPOTECAN HYDROCHLORIDE
     Indication: Refractory cancer
     Dosage: 0.75 MG/M2 (GIVEN FOR THE MAXIMUM OF 5 DAYS EVERY 21 DAYS)
     Route: 042
     Dates: start: 20211124
  3. TOPOTECAN HYDROCHLORIDE [Suspect]
     Active Substance: TOPOTECAN HYDROCHLORIDE
     Dosage: UNK, (OVER 4 DAYS (0.66 IUM))
     Route: 042
     Dates: start: 20211124
  4. VENETOCLAX [Suspect]
     Active Substance: VENETOCLAX
     Indication: Refractory cancer
     Dosage: 350 MG, QD, (350 MG,1 IN 1 D)
     Route: 048
     Dates: start: 20211122
  5. GRANISETRON [Concomitant]
     Active Substance: GRANISETRON
     Indication: Nausea
     Dosage: 0.88 MG, QD, (1 IN 1 D)
     Route: 042
     Dates: start: 20211221
  6. SULFAMETHOXAZOLE AND TRIMETHOPRIM [Concomitant]
     Active Substance: SULFAMETHOXAZOLE\TRIMETHOPRIM
     Indication: Product used for unknown indication
     Dosage: 272 MG/M2 (136 MG/M2,2 IN 1 D)
     Route: 065
     Dates: start: 20211206

REACTIONS (17)
  - Febrile neutropenia [Recovered/Resolved]
  - Febrile neutropenia [Recovered/Resolved]
  - Febrile neutropenia [Not Recovered/Not Resolved]
  - Fatigue [Unknown]
  - Hypokalaemia [Unknown]
  - Pyrexia [Unknown]
  - Decreased appetite [Unknown]
  - Chills [Unknown]
  - Rhinorrhoea [Unknown]
  - White blood cell count decreased [Unknown]
  - Anaemia [Unknown]
  - Platelet count decreased [Unknown]
  - Lymphocyte count decreased [Unknown]
  - Blood bilirubin increased [Unknown]
  - Febrile neutropenia [Recovered/Resolved]
  - Feeding disorder [Unknown]
  - Mucosal inflammation [Unknown]

NARRATIVE: CASE EVENT DATE: 20211204
